FAERS Safety Report 9056557 (Version 1)
Quarter: 2013Q1

REPORT INFORMATION
  Report Type: Report from Study
  Country: FR (occurrence: FR)
  Receive Date: 20130204
  Receipt Date: 20130204
  Transmission Date: 20140127
  Serious: Yes (Death, Life-Threatening)
  Sender: FDA-Public Use
  Company Number: FR-GLAXOSMITHKLINE-B0864317A

PATIENT
  Age: 75 None
  Sex: Male
  Weight: 66 kg

DRUGS (6)
  1. MELPHALAN [Suspect]
     Indication: PLASMA CELL MYELOMA
     Dosage: 18MG PER DAY
     Dates: start: 20120217, end: 20121019
  2. LENALIDOMIDE [Suspect]
     Indication: PLASMA CELL MYELOMA
     Dosage: 25MG PER DAY
     Route: 048
     Dates: start: 20090730
  3. DEXAMETHASONE [Suspect]
     Indication: PLASMA CELL MYELOMA
     Dates: start: 20090730
  4. VELCADE [Suspect]
     Indication: PLASMA CELL MYELOMA
     Dosage: 2.2MG PER DAY
     Dates: start: 20120217, end: 20121019
  5. PREDNISONE [Suspect]
     Indication: PLASMA CELL MYELOMA
     Dosage: 103MG PER DAY
     Dates: start: 20120217, end: 20121019
  6. ACETYLSALICYLATE LYSINE [Concomitant]
     Indication: THROMBOSIS PROPHYLAXIS
     Dosage: 100MG PER DAY
     Route: 048

REACTIONS (1)
  - Cholangiocarcinoma [Fatal]
